FAERS Safety Report 18467061 (Version 1)
Quarter: 2020Q4

REPORT INFORMATION
  Report Type: Spontaneous
  Country: US (occurrence: US)
  Receive Date: 20201105
  Receipt Date: 20201105
  Transmission Date: 20210114
  Serious: Yes (Hospitalization, Other)
  Sender: FDA-Public Use
  Company Number: US-BION-009167

PATIENT
  Age: 84 Year
  Sex: Male

DRUGS (1)
  1. NIMODIPINE. [Suspect]
     Active Substance: NIMODIPINE
     Indication: SUBARACHNOID HAEMORRHAGE

REACTIONS (1)
  - Vasoplegia syndrome [Recovered/Resolved]
